FAERS Safety Report 9736982 (Version 2)
Quarter: 2015Q3

REPORT INFORMATION
  Report Type: Spontaneous
  Country: US (occurrence: US)
  Receive Date: 20131206
  Receipt Date: 20150804
  Transmission Date: 20151125
  Serious: No
  Sender: FDA-Public Use
  Company Number: US-GILEAD-2009-0022677

PATIENT
  Age: 65 Year
  Sex: Male
  Weight: 120.2 kg

DRUGS (18)
  1. POTASSIUM CHLORIDE. [Concomitant]
     Active Substance: POTASSIUM CHLORIDE
  2. DUONEB [Concomitant]
     Active Substance: ALBUTEROL SULFATE\IPRATROPIUM BROMIDE
  3. REVATIO [Concomitant]
     Active Substance: SILDENAFIL CITRATE
  4. ACTOS [Concomitant]
     Active Substance: PIOGLITAZONE HYDROCHLORIDE
  5. LUMIGAN [Concomitant]
     Active Substance: BIMATOPROST
  6. METFORMIN HCL [Concomitant]
     Active Substance: METFORMIN HYDROCHLORIDE
  7. OXYCODONE [Concomitant]
     Active Substance: OXYCODONE
  8. RANITIDINE [Concomitant]
     Active Substance: RANITIDINE\RANITIDINE HYDROCHLORIDE
  9. FUROSEMIDE. [Concomitant]
     Active Substance: FUROSEMIDE
  10. NORVASC [Concomitant]
     Active Substance: AMLODIPINE BESYLATE
  11. LISINOPRIL. [Concomitant]
     Active Substance: LISINOPRIL
  12. DOXAZOSIN MESYLATE. [Concomitant]
     Active Substance: DOXAZOSIN MESYLATE
  13. ALBUTEROL. [Concomitant]
     Active Substance: ALBUTEROL
  14. OMEPRAZOLE. [Concomitant]
     Active Substance: OMEPRAZOLE
  15. FLONASE [Concomitant]
     Active Substance: FLUTICASONE PROPIONATE
  16. LETAIRIS [Suspect]
     Active Substance: AMBRISENTAN
     Indication: PULMONARY ARTERIAL HYPERTENSION
     Route: 048
     Dates: start: 20090402
  17. SIMVASTATIN. [Concomitant]
     Active Substance: SIMVASTATIN
  18. SPIRIVA [Concomitant]
     Active Substance: TIOTROPIUM BROMIDE MONOHYDRATE

REACTIONS (1)
  - Oedema peripheral [Unknown]
